FAERS Safety Report 6097435-0 (Version None)
Quarter: 2009Q1

REPORT INFORMATION
  Report Type: 
  Country: None (occurrence: None)
  Receive Date: 20090227
  Receipt Date: 20080421
  Transmission Date: 20090719
  Serious: No
  Sender: FDA-Public Use
  Company Number: A0723873A

PATIENT
  Age: 33 Year
  Sex: Female

DRUGS (2)
  1. IMITREX [Suspect]
     Indication: MIGRAINE
     Route: 058
  2. NO CONCURRENT MEDICATION [Concomitant]

REACTIONS (2)
  - HEART RATE INCREASED [None]
  - HEART RATE IRREGULAR [None]
